FAERS Safety Report 16536795 (Version 1)
Quarter: 2019Q3

REPORT INFORMATION
  Report Type: Spontaneous
  Country: RS (occurrence: RS)
  Receive Date: 20190706
  Receipt Date: 20190706
  Transmission Date: 20191004
  Serious: Yes (Other)
  Sender: FDA-Public Use
  Company Number: RS-009507513-1907SRB002078

PATIENT
  Age: 50 Year
  Sex: Female

DRUGS (11)
  1. CEPHALEXIN. [Suspect]
     Active Substance: CEPHALEXIN
     Indication: EVIDENCE BASED TREATMENT
     Dosage: DAYS OF APPLICATION: 70-73 DAYS IN TOTAL: 4
  2. CEFTAZIDIME. [Suspect]
     Active Substance: CEFTAZIDIME
     Indication: EVIDENCE BASED TREATMENT
     Dosage: DAYS OF APPLICATION:12-18, 44-51, DAYS IN TOTAL: 15
  3. VANCOMYCIN [Suspect]
     Active Substance: VANCOMYCIN
     Indication: EVIDENCE BASED TREATMENT
     Dosage: DAYS OF APPLICATION:21-27, 29-40 DAYS IN TOTAL: 19
  4. MEROPENEM. [Suspect]
     Active Substance: MEROPENEM
     Indication: EVIDENCE BASED TREATMENT
     Dosage: DAYS OF APPLICATION:21-26 DAYS IN TOTAL: 6
  5. CYTARABINE. [Concomitant]
     Active Substance: CYTARABINE
     Indication: CHEMOTHERAPY
     Dosage: UNK
     Route: 042
  6. PIPERACILLIN AND TAZOBACTAM [Suspect]
     Active Substance: PIPERACILLIN SODIUM\TAZOBACTAM SODIUM
     Indication: EVIDENCE BASED TREATMENT
     Dosage: DAYS OF APPLICATION:20-21, 29-41 DAYS IN TOTAL: 15
  7. DAUNORUBICIN [Concomitant]
     Active Substance: DAUNORUBICIN
     Indication: CHEMOTHERAPY
     Dosage: UNK
     Route: 042
  8. GENTAMICIN SULFATE. [Suspect]
     Active Substance: GENTAMICIN SULFATE
     Indication: EVIDENCE BASED TREATMENT
     Dosage: DAYS OF APPLICATION: 113-118  DAYS IN TOTAL: 6
  9. IMIPENEM AND CILASTATIN [Suspect]
     Active Substance: CILASTATIN SODIUM\IMIPENEM
     Indication: EVIDENCE BASED TREATMENT
     Dosage: DAYS OF APPLICATION:28-30, 73-90 DAYS IN TOTAL: 11
  10. AMIKACIN. [Suspect]
     Active Substance: AMIKACIN
     Indication: EVIDENCE BASED TREATMENT
     Dosage: DAYS OF APPLICATION:12-18, 26-28, 31-35, 40-44, DAYS IN TOTAL: 20
  11. CIPROFLOXACIN. [Suspect]
     Active Substance: CIPROFLOXACIN
     Indication: EVIDENCE BASED TREATMENT
     Dosage: DAYS OF APPLICATION:19-20 DAYS IN TOTAL: 2

REACTIONS (1)
  - Pathogen resistance [Unknown]
